FAERS Safety Report 4422322-0 (Version None)
Quarter: 2004Q3

REPORT INFORMATION
  Report Type: 
  Country: None (occurrence: None)
  Receive Date: 20040810
  Receipt Date: 20040625
  Transmission Date: 20050211
  Serious: Yes (Hospitalization)
  Sender: FDA-Public Use
  Company Number: B0336858A

PATIENT
  Age: 35 Year
  Sex: Female

DRUGS (3)
  1. COMBIVIR [Suspect]
     Indication: HIV INFECTION
     Dosage: 1TAB TWICE PER DAY
     Route: 048
  2. TENOFOVIR [Suspect]
     Indication: HIV INFECTION
     Dosage: 300MG PER DAY
     Route: 048
  3. CO-TRIMOXAZOLE [Concomitant]

REACTIONS (10)
  - CARDIAC FAILURE CONGESTIVE [None]
  - CARDIAC MURMUR [None]
  - CARDIOMYOPATHY [None]
  - DYSPNOEA [None]
  - GALLOP RHYTHM PRESENT [None]
  - MITRAL VALVE INCOMPETENCE [None]
  - ORTHOPNOEA [None]
  - PALPITATIONS [None]
  - TACHYCARDIA [None]
  - VENOUS PRESSURE JUGULAR INCREASED [None]
